FAERS Safety Report 17314963 (Version 2)
Quarter: 2021Q1

REPORT INFORMATION
  Report Type: Other
  Country: GB (occurrence: GB)
  Receive Date: 20200124
  Receipt Date: 20210202
  Transmission Date: 20210419
  Serious: Yes (Life-Threatening)
  Sender: FDA-Public Use
  Company Number: GB-STRIDES ARCOLAB LIMITED-2020SP000663

PATIENT
  Age: 48 Year
  Sex: Female

DRUGS (1)
  1. IBUPROFEN. [Suspect]
     Active Substance: IBUPROFEN
     Indication: TOOTHACHE
     Dosage: UNK (CAPSULE)
     Route: 065
     Dates: start: 20191016

REACTIONS (4)
  - Post-traumatic stress disorder [Not Recovered/Not Resolved]
  - Anxiety [Unknown]
  - Anaphylactic reaction [Unknown]
  - Skin reaction [Unknown]

NARRATIVE: CASE EVENT DATE: 201910
